FAERS Safety Report 4708230-6 (Version None)
Quarter: 2005Q3

REPORT INFORMATION
  Report Type: 
  Country: None (occurrence: None)
  Receive Date: 20050705
  Receipt Date: 20050705
  Transmission Date: 20060218
  Serious: Yes (Life-Threatening, Hospitalization, Disabling)
  Sender: FDA-Public Use
  Company Number: None

PATIENT
  Age: 42 Year
  Sex: Female
  Weight: 183.2532 kg

DRUGS (7)
  1. CELEBREX [Suspect]
     Indication: SHOULDER PAIN
     Dates: start: 20050324, end: 20050601
  2. GLUCOPHAGE [Concomitant]
  3. VASOTEC [Concomitant]
  4. PROTONIX [Concomitant]
  5. PREDNISONE TAB [Concomitant]
  6. DETROL LA [Concomitant]
  7. IRON [Concomitant]

REACTIONS (1)
  - CEREBROVASCULAR ACCIDENT [None]
